FAERS Safety Report 8240762-9 (Version None)
Quarter: 2012Q1

REPORT INFORMATION
  Report Type: 
  Country: None (occurrence: None)
  Receive Date: 20120328
  Receipt Date: 20120322
  Transmission Date: 20120608
  Serious: Yes (Other)
  Sender: FDA-Public Use
  Company Number: PHEH2012US006462

PATIENT
  Sex: Female

DRUGS (7)
  1. AMLODIPINE BESYLATE [Concomitant]
     Dosage: 5 MG, QD
  2. LIPITOR [Concomitant]
     Dosage: 10 MG, QD
  3. VOLTAREN [Concomitant]
     Dosage: UNK UKN, PRN
  4. BIAFINE [Concomitant]
     Dosage: UNK UKN, PRN
  5. DIOVAN [Suspect]
     Dosage: 320 MG, QD
  6. HYDROXYZINE HYDROCHLORIDE [Concomitant]
     Dosage: 10 MG, PRN
  7. METOPROLOL SUCCINATE [Concomitant]
     Dosage: 1.5 DF (50MG), DAILY

REACTIONS (1)
  - SYSTEMIC LUPUS ERYTHEMATOSUS [None]
